FAERS Safety Report 8774545 (Version 3)
Quarter: 2014Q3

REPORT INFORMATION
  Report Type: Spontaneous
  Country: US (occurrence: US)
  Receive Date: 20120907
  Receipt Date: 20140820
  Transmission Date: 20150326
  Serious: Yes (Hospitalization, Other)
  Sender: FDA-Public Use
  Company Number: US-009507513-2012SP007965

PATIENT
  Sex: Female
  Weight: 99.77 kg

DRUGS (1)
  1. NUVARING [Suspect]
     Active Substance: ETHINYL ESTRADIOL\ETONOGESTREL
     Indication: PROPHYLAXIS
     Dates: start: 200906, end: 201002

REACTIONS (12)
  - Small intestinal resection [Unknown]
  - Pain [Unknown]
  - Mesenteric vein thrombosis [Recovered/Resolved]
  - Jejunostomy [Unknown]
  - Gastritis [Unknown]
  - Urine output decreased [Unknown]
  - Gastrointestinal stoma complication [Unknown]
  - Gastrooesophageal reflux disease [Unknown]
  - Abdominal pain [Unknown]
  - Thrombectomy [Recovered/Resolved]
  - Intestinal ischaemia [Unknown]
  - Intestinal obstruction [Unknown]

NARRATIVE: CASE EVENT DATE: 200912
